FAERS Safety Report 12364672 (Version 4)
Quarter: 2016Q3

REPORT INFORMATION
  Report Type: Spontaneous
  Country: CN (occurrence: CN)
  Receive Date: 20160513
  Receipt Date: 20160711
  Transmission Date: 20161109
  Serious: Yes (Other)
  Sender: FDA-Public Use
  Company Number: CN-009507513-1512CHN012626

PATIENT
  Age: 61 Year
  Sex: Male
  Weight: 60 kg

DRUGS (22)
  1. AMBROXOL HYDROCHLORIDE [Concomitant]
     Active Substance: AMBROXOL HYDROCHLORIDE
     Indication: COUGH
     Dosage: TOTAL DAILY DOSE: 30 MG (FREQUENCY: BID)
     Route: 041
     Dates: start: 20150625, end: 20150625
  2. MANNITOL. [Concomitant]
     Active Substance: MANNITOL
     Indication: POLYURIA
     Dosage: 250 ML/CC, QD
     Route: 041
     Dates: start: 20150626, end: 20150627
  3. EMEND [Suspect]
     Active Substance: APREPITANT
     Indication: PROPHYLAXIS OF NAUSEA AND VOMITING
     Dosage: 125 MG, ONCE, DAY 1
     Route: 048
     Dates: start: 20150626, end: 20150626
  4. AMBROXOL HYDROCHLORIDE [Concomitant]
     Active Substance: AMBROXOL HYDROCHLORIDE
     Dosage: 30 MG, QD
     Route: 041
     Dates: start: 20150626, end: 20150630
  5. AI DI ZHU SHE YE [Concomitant]
     Indication: CHEMOTHERAPY
     Dosage: 50 ML/CC, QD
     Route: 041
     Dates: start: 20150619, end: 20150629
  6. CISPLATIN. [Concomitant]
     Active Substance: CISPLATIN
     Indication: CHEMOTHERAPY
     Dosage: 120 MG, TREATMENT CYCLE: 1 TREATMENT REGIMEN: PP
     Route: 041
     Dates: start: 20150626, end: 20150626
  7. CEFPROZIL. [Concomitant]
     Active Substance: CEFPROZIL
     Indication: ANTI-INFECTIVE THERAPY
     Dosage: 2 TABLETS, QD
     Route: 048
     Dates: start: 20150625, end: 20150629
  8. POTASSIUM ASPARTATE [Concomitant]
     Active Substance: POTASSIUM ASPARTATE
     Indication: MINERAL SUPPLEMENTATION
     Dosage: 10 ML/CC, ONCE
     Route: 041
     Dates: start: 20150625, end: 20150628
  9. LANSOPRAZOLE. [Concomitant]
     Active Substance: LANSOPRAZOLE
     Indication: PROPHYLAXIS AGAINST GASTROINTESTINAL ULCER
     Dosage: 30 MG, QD
     Route: 041
     Dates: start: 20150619, end: 20150629
  10. DEXAMETHASONE SODIUM PHOSPHATE. [Concomitant]
     Active Substance: DEXAMETHASONE SODIUM PHOSPHATE
     Indication: PROPHYLAXIS OF NAUSEA AND VOMITING
     Dosage: 10 MG, QD
     Route: 041
     Dates: start: 20150626, end: 20150628
  11. MANNITOL. [Concomitant]
     Active Substance: MANNITOL
     Indication: DEHYDRATION
  12. BO ZHI TANG TAI ZHU SHE YE [Concomitant]
     Indication: IMMUNE ENHANCEMENT THERAPY
     Dosage: TOTAL DAILY DOSE 60 MG, FREQUENCY BID
     Route: 041
     Dates: start: 20150620, end: 20150629
  13. ETHAMSYLATE [Concomitant]
     Active Substance: ETHAMSYLATE
     Indication: HAEMORRHAGE PROPHYLAXIS
     Dosage: 0.5 G, QD
     Route: 041
     Dates: start: 20150619, end: 20150619
  14. MORPHINE HYDROCHLORIDE [Concomitant]
     Active Substance: MORPHINE HYDROCHLORIDE
     Indication: ANALGESIC THERAPY
     Dosage: 10 MG, ONCE
     Route: 048
     Dates: start: 20150620, end: 20150620
  15. CALCIUM CHLORIDE (+) DEXTROSE (+) MAGNESIUM CHLORIDE (+) POTASSIUM CHL [Concomitant]
     Indication: ELECTROLYTE IMBALANCE
     Dosage: 500 ML/CC, QD
     Route: 041
     Dates: start: 20150625, end: 20150628
  16. TORSEMIDE. [Concomitant]
     Active Substance: TORSEMIDE
     Indication: DIURETIC THERAPY
     Dosage: 20 MG, QD
     Route: 042
     Dates: start: 20150626, end: 20150627
  17. EMEND [Suspect]
     Active Substance: APREPITANT
     Dosage: 80 MG, QD, DAY 2 AND DAY 3
     Route: 048
     Dates: start: 20150627, end: 20150628
  18. SODIUM BICARBONATE. [Concomitant]
     Active Substance: SODIUM BICARBONATE
     Indication: URINE ALKALINISATION THERAPY
     Dosage: 12.5 G, QD
     Route: 041
     Dates: start: 20150625, end: 20150628
  19. PEMETREXED DISODIUM [Concomitant]
     Active Substance: PEMETREXED DISODIUM
     Indication: CHEMOTHERAPY
     Dosage: 800 MG, TREATMENT CYCLE 1 TREATMENT REGIMEN: PP
     Route: 041
     Dates: start: 20150626, end: 20150626
  20. METOCLOPRAMIDE HYDROCHLORIDE. [Concomitant]
     Active Substance: METOCLOPRAMIDE HYDROCHLORIDE
     Indication: PROPHYLAXIS OF NAUSEA AND VOMITING
     Dosage: 20 MG, QD
     Route: 030
     Dates: start: 20150626, end: 20150628
  21. PALONOSETRON HYDROCHLORIDE. [Concomitant]
     Active Substance: PALONOSETRON HYDROCHLORIDE
     Indication: PROPHYLAXIS OF NAUSEA AND VOMITING
     Dosage: 0.25 MG, QD
     Route: 042
     Dates: start: 20150626, end: 20150628
  22. ETHAMSYLATE [Concomitant]
     Active Substance: ETHAMSYLATE
     Dosage: 0.5 G, ONCE
     Route: 041
     Dates: start: 20150629, end: 20150629

REACTIONS (2)
  - Drug-induced liver injury [Unknown]
  - White blood cell count increased [Unknown]

NARRATIVE: CASE EVENT DATE: 20150628
